FAERS Safety Report 5753799-6 (Version None)
Quarter: 2008Q2

REPORT INFORMATION
  Report Type: 
  Country: None (occurrence: None)
  Receive Date: 20080530
  Receipt Date: 20080528
  Transmission Date: 20081010
  Serious: Yes (Hospitalization)
  Sender: FDA-Public Use
  Company Number: FR-ASTRAZENECA-2008AC01285

PATIENT
  Age: 50 Year
  Sex: Female

DRUGS (1)
  1. GEFITINIB [Suspect]
     Indication: LUNG ADENOCARCINOMA
     Route: 048

REACTIONS (1)
  - PROPIONIBACTERIUM INFECTION [None]
